FAERS Safety Report 4570086-2 (Version None)
Quarter: 2005Q1

REPORT INFORMATION
  Report Type: 
  Country: None (occurrence: None)
  Receive Date: 20050131
  Receipt Date: 20050119
  Transmission Date: 20050727
  Serious: Yes (Hospitalization, Other)
  Sender: FDA-Public Use
  Company Number: USA-2004-0018045

PATIENT
  Age: 55 Year
  Sex: Male
  Weight: 91.6 kg

DRUGS (5)
  1. SPECTRACEF [Suspect]
     Indication: OFF LABEL USE
     Dosage: 200 MG, BID
     Dates: start: 20041019, end: 20041022
  2. SPECTRACEF [Suspect]
     Indication: OTITIS MEDIA
     Dosage: 200 MG, BID
     Dates: start: 20041019, end: 20041022
  3. NEXIUM [Concomitant]
  4. ZANTAC [Concomitant]
  5. DARVOCET [Concomitant]

REACTIONS (7)
  - ANAPHYLACTIC REACTION [None]
  - DYSPHAGIA [None]
  - DYSPNOEA [None]
  - OROPHARYNGEAL SWELLING [None]
  - RASH [None]
  - THROAT TIGHTNESS [None]
  - URTICARIA GENERALISED [None]
